FAERS Safety Report 9708621 (Version 1)
Quarter: 2013Q4

REPORT INFORMATION
  Report Type: Spontaneous
  Country: US (occurrence: US)
  Receive Date: 20131125
  Receipt Date: 20131125
  Transmission Date: 20140711
  Serious: Yes (Other)
  Sender: FDA-Public Use
  Company Number: US-BAYER-2013-140535

PATIENT
  Age: 20 Year
  Sex: Female
  Weight: 58.96 kg

DRUGS (1)
  1. CAMPHO-PHENIQUE ANTISEPTIC COLD SORE GEL WITH DA [Suspect]
     Indication: ORAL HERPES
     Dosage: 3-4 TIMES PER DAY
     Route: 061

REACTIONS (2)
  - Stomatitis haemorrhagic [Not Recovered/Not Resolved]
  - Extra dose administered [None]
